FAERS Safety Report 6067868-7 (Version None)
Quarter: 2009Q1

REPORT INFORMATION
  Report Type: 
  Country: None (occurrence: None)
  Receive Date: 20090203
  Receipt Date: 20090127
  Transmission Date: 20090719
  Serious: Yes (Death)
  Sender: FDA-Public Use
  Company Number: 2009-190002-NL

PATIENT
  Age: 47 Year
  Sex: Female

DRUGS (8)
  1. MIRTAZAPINE [Suspect]
     Dosage: ORAL
     Route: 048
  2. QUETIAPINE FUMARATE [Suspect]
     Dosage: ORAL
     Route: 048
  3. TRAZODONE HCL [Suspect]
     Dosage: ORAL
     Route: 048
  4. GABAPENTIN [Suspect]
  5. TOPIRAMATE [Suspect]
     Dosage: ORAL
     Route: 048
  6. HYDROXYZINE [Suspect]
     Dosage: ORAL
     Route: 048
  7. LEVOTHYROXINE SODIUM [Suspect]
     Dosage: ORAL
     Route: 048
  8. EZETIMIBE [Suspect]
     Dosage: ORAL
     Route: 048

REACTIONS (1)
  - COMPLETED SUICIDE [None]
